FAERS Safety Report 24413661 (Version 1)
Quarter: 2024Q4

REPORT INFORMATION
  Report Type: Spontaneous
  Country: JP (occurrence: JP)
  Receive Date: 20241008
  Receipt Date: 20241008
  Transmission Date: 20250114
  Serious: Yes (Death, Other)
  Sender: ASTELLAS
  Company Number: JP-ASTELLAS-2024-AER-010897

PATIENT
  Age: 83 Year
  Sex: Male

DRUGS (1)
  1. CRESEMBA [Suspect]
     Active Substance: ISAVUCONAZONIUM SULFATE
     Indication: Aspergilloma
     Route: 048

REACTIONS (3)
  - Coronavirus infection [Fatal]
  - Decreased appetite [Recovered/Resolved]
  - Intentional product use issue [Unknown]
